FAERS Safety Report 14799404 (Version 1)
Quarter: 2018Q2

REPORT INFORMATION
  Report Type: Spontaneous
  Country: ES (occurrence: ES)
  Receive Date: 20180424
  Receipt Date: 20180424
  Transmission Date: 20180711
  Serious: Yes (Life-Threatening, Hospitalization)
  Sender: FDA-Public Use
  Company Number: ES-MYLANLABS-2018M1027698

PATIENT
  Age: 44 Year
  Sex: Male
  Weight: 80 kg

DRUGS (8)
  1. ANTABUS [Interacting]
     Active Substance: DISULFIRAM
     Dosage: 250 MG, QD
     Route: 048
  2. AMISULPRIDA [Concomitant]
     Indication: SCHIZOPHRENIA
     Dosage: 800 MG, QD
     Route: 048
  3. LEPONEX 100 MG [Interacting]
     Active Substance: CLOZAPINE
     Dosage: UNK
     Route: 048
  4. CLORAZEPATO NORMON [Concomitant]
     Active Substance: CLORAZEPATE DIPOTASSIUM
     Dosage: 30 MG, QD
     Route: 048
  5. AKINETON [Interacting]
     Active Substance: BIPERIDEN HYDROCHLORIDE
     Dosage: 4 MG, QD
     Route: 048
  6. RISPERIDONA NORMON [Interacting]
     Active Substance: RISPERIDONE
     Dosage: 4.5 MG, QD
     Route: 048
  7. ESCITALOPRAM NORMON [Concomitant]
     Dosage: 10 MG, QD
     Route: 048
  8. LEPONEX 100 MG [Suspect]
     Active Substance: CLOZAPINE
     Indication: SCHIZOPHRENIA
     Dosage: 550 MG, QD
     Route: 048
     Dates: start: 20170101, end: 20170926

REACTIONS (1)
  - Intestinal ischaemia [Recovered/Resolved with Sequelae]

NARRATIVE: CASE EVENT DATE: 20170926
